FAERS Safety Report 9255552 (Version 2)
Quarter: 2013Q2

REPORT INFORMATION
  Report Type: Spontaneous
  Country: US (occurrence: US)
  Receive Date: 20130425
  Receipt Date: 20130426
  Transmission Date: 20140414
  Serious: No
  Sender: FDA-Public Use
  Company Number: US-009507513-1304USA014360

PATIENT
  Sex: Male

DRUGS (13)
  1. TEMODAR [Suspect]
     Indication: MALIGNANT MELANOMA
     Dosage: 300 MG, QD
     Route: 048
     Dates: start: 20130326
  2. OXYCONTIN [Concomitant]
  3. NORVASC [Concomitant]
  4. PROTONA [Concomitant]
  5. DIOVAN [Concomitant]
  6. CYMBALTA [Concomitant]
  7. MARINOL [Concomitant]
  8. MEGACE [Concomitant]
  9. PROBIOTICA [Concomitant]
  10. BIOTIN [Concomitant]
  11. CITRACAL + D [Concomitant]
  12. ZOFRAN [Concomitant]
  13. ZYRTEC [Concomitant]

REACTIONS (4)
  - Lip swelling [Unknown]
  - Lymphadenopathy [Unknown]
  - Fatigue [Unknown]
  - Vomiting [Unknown]
